FAERS Safety Report 17535281 (Version 1)
Quarter: 2020Q1

REPORT INFORMATION
  Report Type: Report from Study
  Country: US (occurrence: US)
  Receive Date: 20200312
  Receipt Date: 20200312
  Transmission Date: 20200409
  Serious: Yes (Hospitalization, Other)
  Sender: FDA-Public Use
  Company Number: US-ACTELION-A-NJ2019-199909

PATIENT
  Sex: Male
  Weight: 84.81 kg

DRUGS (3)
  1. ADEMPAS [Suspect]
     Active Substance: RIOCIGUAT
     Dosage: 1.5 MG, TID
     Route: 048
  2. OPSUMIT [Suspect]
     Active Substance: MACITENTAN
     Indication: PULMONARY ARTERIAL HYPERTENSION
     Dosage: 10 MG, QD
     Route: 048
  3. ADEMPAS [Suspect]
     Active Substance: RIOCIGUAT
     Indication: PRODUCT USED FOR UNKNOWN INDICATION
     Dosage: 0.5 MG
     Route: 065

REACTIONS (11)
  - Dyspnoea exertional [Unknown]
  - Oedema peripheral [Unknown]
  - Constipation [Unknown]
  - Breath sounds abnormal [Unknown]
  - Swelling [Unknown]
  - Poor quality sleep [Unknown]
  - Weight increased [Unknown]
  - Transplant [Unknown]
  - Dyspnoea [Unknown]
  - Nasal congestion [Unknown]
  - Fluid retention [Unknown]
